FAERS Safety Report 8825720 (Version 1)
Quarter: 2012Q4

REPORT INFORMATION
  Report Type: 
  Country: NL (occurrence: NL)
  Receive Date: 20121004
  Receipt Date: 20121004
  Transmission Date: 20130627
  Serious: Yes (Other)
  Sender: FDA-Public Use
  Company Number: NL-ASTRAZENECA-2001SE06424

PATIENT
  Age: 26826 Day
  Sex: Female

DRUGS (7)
  1. SEROQUEL [Suspect]
     Indication: SCHIZOPHRENIA
     Route: 048
     Dates: start: 20000929, end: 20010213
  2. NOROXIN [Suspect]
  3. VENTOLIN [Concomitant]
     Route: 048
     Dates: start: 20000417, end: 20001228
  4. DOGMATIL [Concomitant]
     Indication: SCHIZOPHRENIA
     Route: 048
     Dates: start: 19990729, end: 20001024
  5. DIPIPERON [Concomitant]
     Indication: SCHIZOPHRENIA
     Route: 048
     Dates: start: 19990729, end: 20010213
  6. VITAMINE B COMPLEX [Concomitant]
     Route: 048
     Dates: start: 19990729, end: 20010213
  7. LACTULOSUM [Concomitant]
     Indication: CONSTIPATION
     Route: 048
     Dates: start: 19990729

REACTIONS (4)
  - Decreased appetite [Recovered/Resolved]
  - Arthralgia [Recovered/Resolved]
  - Conjunctivitis [Recovered/Resolved]
  - Hypoproteinaemia [Recovered/Resolved]
